FAERS Safety Report 8350269-6 (Version None)
Quarter: 2012Q2

REPORT INFORMATION
  Report Type: 
  Country: None (occurrence: None)
  Receive Date: 20120510
  Receipt Date: 20120503
  Transmission Date: 20120825
  Serious: Yes (Other)
  Sender: FDA-Public Use
  Company Number: ES-ROCHE-1066622

PATIENT
  Age: 9 Year
  Sex: Male

DRUGS (2)
  1. XOLAIR [Suspect]
     Indication: ASTHMA
  2. XOLAIR [Suspect]
     Dates: start: 20120502

REACTIONS (3)
  - JOINT STIFFNESS [None]
  - SYNCOPE [None]
  - RETROGRADE AMNESIA [None]
